FAERS Safety Report 5381415-4 (Version None)
Quarter: 2007Q3

REPORT INFORMATION
  Report Type: 
  Country: None (occurrence: None)
  Receive Date: 20070709
  Receipt Date: 20070703
  Transmission Date: 20080115
  Serious: Yes (Death, Life-Threatening, Hospitalization)
  Sender: FDA-Public Use
  Company Number: BE-JNJFOC-20070603896

PATIENT
  Sex: Female
  Weight: 55.7 kg

DRUGS (8)
  1. REMINYL [Suspect]
     Indication: DEMENTIA ALZHEIMER'S TYPE
     Dosage: ^5 YEARS AGO^
     Route: 048
  2. MARCUMAR [Interacting]
     Indication: DRUG USE FOR UNKNOWN INDICATION
  3. LEVOTHYROXINE SODIUM [Concomitant]
     Indication: HYPOTHYROIDISM
  4. PRAVASTATIN [Concomitant]
     Indication: BLOOD CHOLESTEROL
  5. CORUNO [Concomitant]
     Indication: CARDIAC DISORDER
  6. XANAX RETARD [Concomitant]
  7. OMEPRAZOLE [Concomitant]
     Indication: GASTRIC ULCER
  8. KINZALKOMB [Concomitant]
     Indication: HYPERTENSION

REACTIONS (2)
  - DEPRESSED LEVEL OF CONSCIOUSNESS [None]
  - DRUG INTERACTION [None]
